FAERS Safety Report 5961160-4 (Version None)
Quarter: 2008Q4

REPORT INFORMATION
  Report Type: 
  Country: None (occurrence: None)
  Receive Date: 20081119
  Receipt Date: 20081107
  Transmission Date: 20090506
  Serious: Yes (Other)
  Sender: FDA-Public Use
  Company Number: DSU-2008-01950

PATIENT
  Age: 77 Year
  Sex: Female

DRUGS (2)
  1. OLMETEC HCT (HYDROCHLOROTHIAZIDE, OLMESARTAN MEDOXOMIL) (TABLET) ( HYD [Suspect]
     Indication: DRUG USE FOR UNKNOWN INDICATION
     Dosage: 40 / 25 MG (QD), PER ORAL
     Route: 048
     Dates: start: 20080819, end: 20081022
  2. NECEDIPRINA [INGREDIENTS UNKNOWN] [Concomitant]

REACTIONS (4)
  - BLISTER [None]
  - BLOOD PRESSURE INCREASED [None]
  - PAIN [None]
  - PAIN IN EXTREMITY [None]
